FAERS Safety Report 13885142 (Version 12)
Quarter: 2019Q3

REPORT INFORMATION
  Report Type: Report from Study
  Country: CA (occurrence: CA)
  Receive Date: 20170821
  Receipt Date: 20190812
  Transmission Date: 20191004
  Serious: Yes (Hospitalization, Other)
  Sender: FDA-Public Use
  Company Number: CA-BRISTOL-MYERS SQUIBB COMPANY-BMS-2017-073424

PATIENT
  Age: 58 Year
  Sex: Female

DRUGS (1)
  1. ABATACEPT [Suspect]
     Active Substance: ABATACEPT
     Indication: RHEUMATOID ARTHRITIS
     Dosage: 1000 MILLIGRAM, Q4WK
     Route: 042
     Dates: start: 20061121

REACTIONS (14)
  - Limb injury [Recovering/Resolving]
  - Gingival swelling [Unknown]
  - Kidney infection [Recovered/Resolved]
  - Musculoskeletal stiffness [Recovering/Resolving]
  - Oedema peripheral [Not Recovered/Not Resolved]
  - Haematoma [Unknown]
  - Burning sensation [Unknown]
  - Upper limb fracture [Unknown]
  - Oral pain [Unknown]
  - Sensory loss [Unknown]
  - Fall [Recovering/Resolving]
  - Ankle fracture [Unknown]
  - Adverse event [Unknown]
  - Arthralgia [Unknown]

NARRATIVE: CASE EVENT DATE: 20170921
